FAERS Safety Report 11079753 (Version 1)
Quarter: 2015Q2

REPORT INFORMATION
  Report Type: Spontaneous
  Country: US (occurrence: US)
  Receive Date: 20150430
  Receipt Date: 20150430
  Transmission Date: 20150821
  Serious: Yes (Other)
  Sender: FDA-Public Use
  Company Number: US-GILEAD-2015-0150271

PATIENT

DRUGS (3)
  1. PROBENECID. [Concomitant]
     Active Substance: PROBENECID
  2. VISTIDE [Suspect]
     Active Substance: CIDOFOVIR
     Indication: VIRAL INFECTION
     Dosage: 5 MG/KG, Q1WK
     Route: 042
  3. IVIGLOB EX [Concomitant]
     Active Substance: HUMAN IMMUNOGLOBULIN G
     Dosage: UNK, CYCLICAL
     Route: 042

REACTIONS (3)
  - Renal injury [Unknown]
  - Glomerular filtration rate decreased [Unknown]
  - Off label use [Unknown]
